FAERS Safety Report 21701632 (Version 1)
Quarter: 2022Q4

REPORT INFORMATION
  Report Type: Report from Study
  Country: GB (occurrence: None)
  Receive Date: 20221208
  Receipt Date: 20221208
  Transmission Date: 20230113
  Serious: Yes (Hospitalization)
  Sender: FDA-Public Use
  Company Number: GB-ROCHE-3230176

PATIENT
  Age: 59 Year
  Sex: Female
  Weight: 113.8 kg

DRUGS (5)
  1. GLOFITAMAB [Suspect]
     Active Substance: GLOFITAMAB
     Indication: Follicular lymphoma
     Dosage: ON 19/OCT/2022, SHE RECEIVED MOST RECENT DOSE 30 MG OF STUDY DRUG GLOFITAMAB PRIOR TO SAE/AE.
     Route: 042
     Dates: start: 20220905
  2. ATEZOLIZUMAB [Suspect]
     Active Substance: ATEZOLIZUMAB
     Indication: Follicular lymphoma
     Dosage: ON 19/OCT/2022, SHE RECEIVED MOST RECENT DOSE 1200 MG OF STUDY DRUG ATEZOLIZUMAB PRIOR TO SAE/AE.
     Route: 041
     Dates: start: 20221019
  3. OBINUTUZUMAB [Suspect]
     Active Substance: OBINUTUZUMAB
     Indication: Follicular lymphoma
     Dosage: ON 30/AUG/2022, SHE RECEIVED MOST RECENT DOSE 1000 MG OF STUDY DRUG OBINUTUZUMAB PRIOR TO SAE/AE.
     Route: 042
     Dates: start: 20220830
  4. ARTIFICIAL SALIVA SPRAY (UNK INGREDIENTS) [Concomitant]
     Indication: Dry mouth
  5. FILGRASTIM [Concomitant]
     Active Substance: FILGRASTIM
     Indication: Dry mouth

REACTIONS (1)
  - Gastric ulcer [Not Recovered/Not Resolved]

NARRATIVE: CASE EVENT DATE: 20221121
